FAERS Safety Report 22591363 (Version 1)
Quarter: 2023Q2

REPORT INFORMATION
  Report Type: Report from Study
  Country: IT (occurrence: IT)
  Receive Date: 20230612
  Receipt Date: 20230612
  Transmission Date: 20230722
  Serious: Yes (Other)
  Sender: FDA-Public Use
  Company Number: IT-AMRYT PHARMACEUTICALS DAC-AEGR006521

PATIENT

DRUGS (1)
  1. LOMITAPIDE [Suspect]
     Active Substance: LOMITAPIDE
     Indication: Familial hypertriglyceridaemia
     Dosage: UNK

REACTIONS (4)
  - Pancreatitis acute [Unknown]
  - Gastrointestinal disorder [Unknown]
  - Abdominal pain [Unknown]
  - Off label use [Unknown]
